FAERS Safety Report 5365608-8 (Version None)
Quarter: 2007Q2

REPORT INFORMATION
  Report Type: 
  Country: None (occurrence: None)
  Receive Date: 20070621
  Receipt Date: 20070612
  Transmission Date: 20071010
  Serious: Yes (Life-Threatening, Other)
  Sender: FDA-Public Use
  Company Number: FR-BRISTOL-MYERS SQUIBB COMPANY-13820816

PATIENT
  Age: 58 Year
  Sex: Male

DRUGS (5)
  1. CYCLOPHOSPHAMIDE [Suspect]
     Indication: LYMPHOMA
     Route: 042
     Dates: start: 20050713, end: 20050801
  2. DOXORUBICIN HCL [Suspect]
     Indication: LYMPHOMA
     Route: 042
     Dates: start: 20050415, end: 20050621
  3. ONCOVIN [Suspect]
     Indication: LYMPHOMA
     Route: 042
     Dates: start: 20050415, end: 20050815
  4. PREDNISOLONE [Suspect]
     Indication: LYMPHOMA
     Route: 048
     Dates: start: 20050415, end: 20050819
  5. MABTHERA [Suspect]
     Indication: LYMPHOMA
     Route: 042
     Dates: start: 20050530, end: 20050621

REACTIONS (3)
  - METASTASIS [None]
  - PROSTATE CANCER [None]
  - PROSTATIC SPECIFIC ANTIGEN INCREASED [None]
